FAERS Safety Report 20817614 (Version 2)
Quarter: 2022Q2

REPORT INFORMATION
  Report Type: Spontaneous
  Country: TR (occurrence: TR)
  Receive Date: 20220512
  Receipt Date: 20220513
  Transmission Date: 20220721
  Serious: Yes (Other)
  Sender: FDA-Public Use
  Company Number: TR-BAYER-2022A063938

PATIENT
  Age: 67 Year
  Sex: Male

DRUGS (4)
  1. EYLEA [Suspect]
     Active Substance: AFLIBERCEPT
     Indication: Product used for unknown indication
     Dosage: 2 MG, LEFT EYE; (STRENGTH: 40 MG/ML)
     Route: 031
  2. POVIDONE-IODINE [Concomitant]
     Active Substance: POVIDONE-IODINE
     Indication: Product used for unknown indication
     Dosage: PERIOCULAR SKIN
     Route: 061
  3. POVIDONE-IODINE [Concomitant]
     Active Substance: POVIDONE-IODINE
     Dosage: CONJUNCTIVAL FORNIX
     Route: 047
  4. MOXAI [Concomitant]
     Indication: Product used for unknown indication
     Dosage: TOPICAL DROP, QID
     Route: 061

REACTIONS (5)
  - Blindness unilateral [Recovered/Resolved]
  - Retinal exudates [Recovered/Resolved]
  - Retinal haemorrhage [Recovered/Resolved]
  - Bacterial endophthalmitis [Recovered/Resolved]
  - Vitritis [Recovered/Resolved]
